FAERS Safety Report 12508574 (Version 1)
Quarter: 2016Q2

REPORT INFORMATION
  Report Type: Report from Study
  Country: US (occurrence: US)
  Receive Date: 20160629
  Receipt Date: 20160629
  Transmission Date: 20160815
  Serious: Yes (Death, Hospitalization)
  Sender: FDA-Public Use
  Company Number: US-BAYER-2014-126453

PATIENT
  Age: 65 Year
  Sex: Female
  Weight: 72.56 kg

DRUGS (24)
  1. OMEPRAZOLE. [Concomitant]
     Active Substance: OMEPRAZOLE
  2. PULMICORT TURBUHALER [Concomitant]
     Active Substance: BUDESONIDE
  3. ADEMPAS [Suspect]
     Active Substance: RIOCIGUAT
     Indication: PULMONARY HYPERTENSION
     Dosage: 2.5 MG, TID
     Route: 048
  4. XARELTO [Concomitant]
     Active Substance: RIVAROXABAN
     Indication: ANTICOAGULANT THERAPY
     Dosage: 20 MG, QD
  5. FUROSEMIDE. [Concomitant]
     Active Substance: FUROSEMIDE
     Indication: DIURETIC THERAPY
     Dosage: 20 MG, BID
  6. ALBUTEROL. [Concomitant]
     Active Substance: ALBUTEROL
  7. EXENATIDE [Concomitant]
     Active Substance: EXENATIDE
  8. TIOTROPIUM [Concomitant]
     Active Substance: TIOTROPIUM
  9. ADEMPAS [Suspect]
     Active Substance: RIOCIGUAT
     Indication: PULMONARY HYPERTENSION
     Dosage: UNK UNK, TID
     Route: 048
     Dates: start: 20131204
  10. MODAFINIL. [Concomitant]
     Active Substance: MODAFINIL
  11. TRAZODONE [Concomitant]
     Active Substance: TRAZODONE HYDROCHLORIDE
  12. ADEMPAS [Suspect]
     Active Substance: RIOCIGUAT
     Indication: PULMONARY HYPERTENSION
     Dosage: 2.5 MG, TID
     Route: 048
  13. LISINOPRIL. [Concomitant]
     Active Substance: LISINOPRIL
     Dosage: 20 MG, QD
  14. AMITRIPTYLINE [Concomitant]
     Active Substance: AMITRIPTYLINE
  15. PREDNISONE. [Concomitant]
     Active Substance: PREDNISONE
  16. ADEMPAS [Suspect]
     Active Substance: RIOCIGUAT
     Indication: PULMONARY HYPERTENSION
     Dosage: 2.5 MG, TID
     Route: 048
  17. SYMBICORT [Concomitant]
     Active Substance: BUDESONIDE\FORMOTEROL FUMARATE DIHYDRATE
  18. K-DUR [Concomitant]
     Active Substance: POTASSIUM CHLORIDE
  19. SIMVASTATIN. [Concomitant]
     Active Substance: SIMVASTATIN
  20. ADEMPAS [Suspect]
     Active Substance: RIOCIGUAT
     Indication: PULMONARY HYPERTENSION
     Dosage: 2.5 MG, TID
     Route: 048
  21. HUMALOG [Concomitant]
     Active Substance: INSULIN LISPRO
  22. MVI [Concomitant]
     Active Substance: VITAMINS
  23. MIRALAX [Concomitant]
     Active Substance: POLYETHYLENE GLYCOL 3350
  24. LEVEMIR [Concomitant]
     Active Substance: INSULIN DETEMIR
     Indication: DIABETES MELLITUS

REACTIONS (12)
  - Pericardial effusion [None]
  - Musculoskeletal discomfort [None]
  - Pericardial effusion [Recovered/Resolved]
  - Death [Fatal]
  - Shoulder arthroplasty [Recovered/Resolved]
  - Pleural effusion [None]
  - Oxygen saturation decreased [None]
  - Pleural effusion [Recovered/Resolved]
  - Pulmonary veno-occlusive disease [None]
  - Pleural effusion [None]
  - Pericardial effusion [None]
  - Pericardial effusion [Unknown]

NARRATIVE: CASE EVENT DATE: 20140731
